FAERS Safety Report 7150857-9 (Version None)
Quarter: 2010Q4

REPORT INFORMATION
  Report Type: 
  Country: None (occurrence: None)
  Receive Date: 20101210
  Receipt Date: 20101201
  Transmission Date: 20110411
  Serious: Yes (Death)
  Sender: FDA-Public Use
  Company Number: NL-GENZYME-FLUD-1000481

PATIENT

DRUGS (7)
  1. FLUDARA [Suspect]
     Indication: ACUTE MYELOID LEUKAEMIA RECURRENT
     Dosage: 30 MG/M2, QDX5
     Route: 065
  2. FLUDARA [Suspect]
     Dosage: 30 MG/M2, QDX5
     Route: 065
  3. G-CSF [Suspect]
     Indication: ACUTE MYELOID LEUKAEMIA RECURRENT
     Dosage: 200 MCG/M2, QD
     Route: 065
  4. G-CSF [Suspect]
     Dosage: 200 MCG/M2, QD
     Route: 065
  5. ARA-C [Suspect]
     Indication: ACUTE MYELOID LEUKAEMIA RECURRENT
     Dosage: 2 G/M2, QDX5
     Route: 065
  6. ARA-C [Suspect]
     Dosage: 2 G/M2, QDX5
     Route: 065
  7. DAUNORUBICIN HCL [Suspect]
     Indication: ACUTE MYELOID LEUKAEMIA RECURRENT
     Dosage: 60 MG/M2, QD ON DAYS 1, 3, AND 5
     Route: 065

REACTIONS (3)
  - ADVERSE EVENT [None]
  - INFECTION [None]
  - SHOCK [None]
